FAERS Safety Report 24189045 (Version 1)
Quarter: 2024Q3

REPORT INFORMATION
  Report Type: Spontaneous
  Country: US (occurrence: US)
  Receive Date: 20240808
  Receipt Date: 20240808
  Transmission Date: 20241017
  Serious: Yes (Life-Threatening, Hospitalization, Other)
  Sender: MYLAN
  Company Number: US-MYLANLABS-2024M1072769

PATIENT
  Age: 33 Year
  Sex: Female

DRUGS (5)
  1. PACLITAXEL [Suspect]
     Active Substance: PACLITAXEL
     Indication: Ovarian epithelial cancer stage III
     Dosage: UNK, INFUSION
     Route: 065
  2. DOXORUBICIN [Suspect]
     Active Substance: DOXORUBICIN
     Indication: Ovarian epithelial cancer stage III
     Dosage: UNK
     Route: 065
  3. GEMCITABINE [Suspect]
     Active Substance: GEMCITABINE
     Indication: Ovarian epithelial cancer stage III
     Dosage: UNK
     Route: 065
  4. CARBOPLATIN [Suspect]
     Active Substance: CARBOPLATIN
     Indication: Ovarian epithelial cancer stage III
     Dosage: UNK
     Route: 065
  5. NIRAPARIB [Concomitant]
     Active Substance: NIRAPARIB
     Indication: Ovarian epithelial cancer stage III
     Dosage: UNK
     Route: 065

REACTIONS (6)
  - Anaphylactic reaction [Recovered/Resolved]
  - Pulse absent [Recovered/Resolved]
  - Ventricular fibrillation [Recovered/Resolved]
  - Drug ineffective [Unknown]
  - Disease progression [Unknown]
  - Haematotoxicity [Unknown]
